FAERS Safety Report 6975092-6 (Version None)
Quarter: 2010Q3

REPORT INFORMATION
  Report Type: 
  Country: None (occurrence: None)
  Receive Date: 20100910
  Receipt Date: 20090217
  Transmission Date: 20110219
  Serious: No
  Sender: FDA-Public Use
  Company Number: US-WYE-H07972009

PATIENT
  Sex: Male

DRUGS (4)
  1. PRISTIQ [Suspect]
     Indication: DEPRESSION
     Route: 048
     Dates: start: 20081209, end: 20081201
  2. PRISTIQ [Suspect]
     Route: 048
     Dates: start: 20081201, end: 20081201
  3. PRISTIQ [Suspect]
     Route: 048
     Dates: start: 20081201
  4. ERYTHROMYCIN [Concomitant]

REACTIONS (1)
  - MEMORY IMPAIRMENT [None]
